FAERS Safety Report 22013114 (Version 1)
Quarter: 2023Q1

REPORT INFORMATION
  Report Type: Spontaneous
  Country: CA (occurrence: CA)
  Receive Date: 20230220
  Receipt Date: 20230220
  Transmission Date: 20230418
  Serious: Yes (Hospitalization)
  Sender: FDA-Public Use
  Company Number: CA-FreseniusKabi-FK202301841

PATIENT
  Age: 39 Year
  Sex: Female

DRUGS (8)
  1. HYDROMORPHONE [Suspect]
     Active Substance: HYDROMORPHONE
     Indication: Product used for unknown indication
     Route: 065
  2. CLONAZEPAM [Suspect]
     Active Substance: CLONAZEPAM
     Indication: Product used for unknown indication
     Route: 065
  3. CYMBALTA [Suspect]
     Active Substance: DULOXETINE HYDROCHLORIDE
     Indication: Product used for unknown indication
     Route: 065
  4. OMALIZUMAB [Suspect]
     Active Substance: OMALIZUMAB
     Indication: Chronic spontaneous urticaria
     Route: 058
  5. HYDROXYZINE [Concomitant]
     Active Substance: HYDROXYZINE HYDROCHLORIDE
     Indication: Hypersensitivity
     Route: 065
  6. REACTINE [Concomitant]
     Indication: Product used for unknown indication
     Route: 065
  7. VORTIOXETINE HYDROBROMIDE [Concomitant]
     Active Substance: VORTIOXETINE HYDROBROMIDE
     Indication: Product used for unknown indication
     Route: 065
  8. ZOPICLONE [Concomitant]
     Active Substance: ZOPICLONE
     Indication: Product used for unknown indication
     Route: 065

REACTIONS (25)
  - Arthralgia [Unknown]
  - Cough [Unknown]
  - Decompression sickness [Unknown]
  - Inappropriate schedule of product administration [Unknown]
  - Influenza [Unknown]
  - Mental disorder [Unknown]
  - Migraine [Unknown]
  - Mobility decreased [Unknown]
  - Nasal congestion [Unknown]
  - Nasopharyngitis [Unknown]
  - Pain [Unknown]
  - Postoperative wound infection [Unknown]
  - Pyrexia [Unknown]
  - Weight decreased [Unknown]
  - Weight increased [Unknown]
  - Anxiety [Unknown]
  - Asthenia [Unknown]
  - Decreased appetite [Unknown]
  - Depression [Unknown]
  - Dyspnoea [Unknown]
  - Fatigue [Unknown]
  - Feeling abnormal [Unknown]
  - Headache [Unknown]
  - Malaise [Unknown]
  - Urticaria [Unknown]
